FAERS Safety Report 4509996-0 (Version None)
Quarter: 2004Q4

REPORT INFORMATION
  Report Type: 
  Country: None (occurrence: None)
  Receive Date: 20041124
  Receipt Date: 20040722
  Transmission Date: 20050328
  Serious: Yes (Hospitalization)
  Sender: FDA-Public Use
  Company Number: JP-ABBOTT-04P-087-0268270-00

PATIENT
  Sex: Male

DRUGS (13)
  1. NORVIR [Suspect]
     Indication: HIV INFECTION
     Route: 048
     Dates: start: 20030401, end: 20030822
  2. DIDANOSINE [Concomitant]
     Indication: HIV INFECTION
     Route: 048
     Dates: start: 20030401, end: 20030822
  3. LAMIVUDINE [Concomitant]
     Indication: HIV INFECTION
     Route: 048
     Dates: start: 20030401, end: 20030822
  4. LAMIVUDINE [Concomitant]
     Route: 048
     Dates: start: 20031112
  5. SAQUINAVIR [Concomitant]
     Indication: HIV INFECTION
     Route: 048
     Dates: start: 20030401, end: 20030822
  6. AMPRENAVIR [Concomitant]
     Indication: HIV INFECTION
     Route: 048
     Dates: start: 20030401, end: 20030822
  7. TENOFOVIR [Concomitant]
     Indication: HIV INFECTION
     Route: 048
     Dates: start: 20030401, end: 20030822
  8. STAVUDINE [Concomitant]
     Indication: HIV INFECTION
     Route: 048
     Dates: start: 20031112
  9. PENTAMIDINE [Concomitant]
     Indication: INFECTION PROPHYLAXIS
     Route: 055
     Dates: start: 20030401, end: 20030820
  10. PENTAMIDINE [Concomitant]
     Route: 042
     Dates: start: 20030828, end: 20030828
  11. KALETRA [Concomitant]
     Indication: HIV INFECTION
     Route: 048
     Dates: start: 20031112
  12. CLARITHROMYCIN [Concomitant]
     Indication: MYCOBACTERIUM AVIUM COMPLEX INFECTION
     Route: 048
     Dates: start: 20030401, end: 20030828
  13. CLARITHROMYCIN [Concomitant]
     Route: 048
     Dates: start: 20030924

REACTIONS (2)
  - ATYPICAL MYCOBACTERIAL INFECTION [None]
  - PNEUMOCYSTIS CARINII PNEUMONIA [None]
